FAERS Safety Report 9515375 (Version 1)
Quarter: 2013Q1

REPORT INFORMATION
  Report Type: Spontaneous
  Country: US (occurrence: None)
  Receive Date: 20130305
  Receipt Date: 20130305
  Transmission Date: 20140127
  Serious: Yes (Hospitalization)
  Sender: FDA-Public Use
  Company Number: 163-21880-12114031

PATIENT
  Age: 71 Year
  Sex: Female

DRUGS (6)
  1. REVLIMID [Suspect]
     Indication: PLASMA CELL MYELOMA
     Route: 048
     Dates: start: 201011
  2. ACYCLOVIR (ACICLOVIR) (UNKNOWN) [Concomitant]
  3. MAGNESIUM GLUCONATE (MAGNESIUM GLUCONATE) (UNKNOWN) [Concomitant]
  4. PERCOCET (OXYCOCET) (UNKNOWN) [Concomitant]
  5. POTASSIUM BICARBONATE (POTASSIUM BICARBONATE) (UNKNOWN) [Concomitant]
  6. VITAMIN B COMPLEX (B-KOMPLEX ^LECIVA^) (UNKNOWN) [Concomitant]

REACTIONS (1)
  - Pneumonia [None]
